FAERS Safety Report 10014215 (Version 3)
Quarter: 2018Q1

REPORT INFORMATION
  Report Type: Report from Study
  Country: US (occurrence: US)
  Receive Date: 20140317
  Receipt Date: 20180315
  Transmission Date: 20180508
  Serious: Yes (Other)
  Sender: FDA-Public Use
  Company Number: US-ROCHE-1358399

PATIENT
  Sex: Female
  Weight: 45.7 kg

DRUGS (3)
  1. NUTROPIN AQ [Suspect]
     Active Substance: SOMATROPIN
     Indication: GROWTH HORMONE DEFICIENCY
     Route: 058
     Dates: start: 201303, end: 201311
  2. NUTROPIN AQ [Suspect]
     Active Substance: SOMATROPIN
     Indication: RADIOTHERAPY
     Route: 058
     Dates: start: 201312
  3. PREDNISONE. [Concomitant]
     Active Substance: PREDNISONE
     Route: 065
     Dates: start: 20111117

REACTIONS (4)
  - Dizziness [Unknown]
  - Arthralgia [Unknown]
  - Rosai-Dorfman syndrome [Unknown]
  - Asthenia [Unknown]
